FAERS Safety Report 15798721 (Version 3)
Quarter: 2019Q1

REPORT INFORMATION
  Report Type: Spontaneous
  Country: US (occurrence: US)
  Receive Date: 20190108
  Receipt Date: 20190220
  Transmission Date: 20190417
  Serious: Yes (Death, Hospitalization)
  Sender: FDA-Public Use
  Company Number: US-PFIZER INC-2018014612

PATIENT
  Age: 69 Year
  Sex: Female
  Weight: 63.5 kg

DRUGS (2)
  1. IBRANCE [Suspect]
     Active Substance: PALBOCICLIB
     Indication: BREAST CANCER FEMALE
     Dosage: 125 MG, CYCLIC [ONCE A DAY FOR 21 DAYS ON, 7 DAYS OFF]
     Route: 048
  2. IBRANCE [Suspect]
     Active Substance: PALBOCICLIB
     Dosage: 125 MG, CYCLIC [ONCE A DAY FOR 21 DAYS ON, 7 DAYS OFF]
     Route: 048
     Dates: end: 20181230

REACTIONS (7)
  - Skin discolouration [Recovered/Resolved]
  - Red blood cell count decreased [Recovering/Resolving]
  - Joint swelling [Recovered/Resolved]
  - Platelet count decreased [Recovering/Resolving]
  - Peripheral swelling [Recovered/Resolved]
  - Death [Fatal]
  - White blood cell count decreased [Recovering/Resolving]

NARRATIVE: CASE EVENT DATE: 20181230
